FAERS Safety Report 9413399 (Version 1)
Quarter: 2013Q3

REPORT INFORMATION
  Report Type: Spontaneous
  Country: FR (occurrence: None)
  Receive Date: 20130717
  Receipt Date: 20130717
  Transmission Date: 20140515
  Serious: Yes (Life-Threatening)
  Sender: FDA-Public Use
  Company Number: 1745164

PATIENT
  Age: 59 Year
  Sex: Female

DRUGS (8)
  1. (CARBOPLATIN) [Suspect]
     Indication: DIFFUSE LARGE B-CELL LYMPHOMA
     Dates: start: 20120720, end: 20120720
  2. (HOLOXAN) [Suspect]
     Indication: DIFFUSE LARGE B-CELL LYMPHOMA
     Route: 042
     Dates: start: 20120720
  3. UROMITEXAN [Suspect]
     Indication: PRODUCT USED FOR UNKNOWN INDICATION
     Route: 042
     Dates: start: 20120720, end: 20120721
  4. (ETOPOSIDE) [Suspect]
     Indication: DIFFUSE LARGE B-CELL LYMPHOMA
     Dates: start: 20120719, end: 20120721
  5. RITUXIMAB [Suspect]
     Indication: DIFFUSE LARGE B-CELL LYMPHOMA
     Dates: start: 20120719, end: 20120720
  6. (SOLUMEDROL) [Concomitant]
  7. (PARACETAMOL) [Concomitant]
  8. (POLARAMINE) [Concomitant]

REACTIONS (11)
  - Encephalopathy [None]
  - Somnolence [None]
  - Loss of consciousness [None]
  - Clonus [None]
  - Thrombocytopenic purpura [None]
  - Status epilepticus [None]
  - Hyponatraemia [None]
  - Renal failure [None]
  - Cholestasis [None]
  - Thrombocytopenia [None]
  - Leukocytosis [None]
